FAERS Safety Report 6082085-2 (Version None)
Quarter: 2009Q1

REPORT INFORMATION
  Report Type: 
  Country: None (occurrence: None)
  Receive Date: 20090218
  Receipt Date: 20081030
  Transmission Date: 20090719
  Serious: No
  Sender: FDA-Public Use
  Company Number: US-BRISTOL-MYERS SQUIBB COMPANY-14390298

PATIENT
  Age: 63 Year
  Sex: Female
  Weight: 131 kg

DRUGS (6)
  1. GLUCOPHAGE [Suspect]
     Indication: TYPE 2 DIABETES MELLITUS
     Dosage: INTERRUPTED AND WAS RESTARTED WITH 1500MG AND INCREAED TO 2000MG ON 23-OCT-2008.
     Dates: start: 20010101
  2. ESTROGENIC SUBSTANCE [Concomitant]
  3. PROGESTERONE [Concomitant]
  4. TESTOSTERONE [Concomitant]
  5. DEHYDROEPIANDROSTERONE [Concomitant]
  6. HYDROCORTISONE [Concomitant]

REACTIONS (1)
  - BLOOD GLUCOSE FLUCTUATION [None]
